FAERS Safety Report 6617841-2 (Version None)
Quarter: 2010Q1

REPORT INFORMATION
  Report Type: 
  Country: None (occurrence: None)
  Receive Date: 20100308
  Receipt Date: 20100305
  Transmission Date: 20100710
  Serious: Yes (Death)
  Sender: FDA-Public Use
  Company Number: PHHY2009IE52272

PATIENT
  Sex: Male

DRUGS (7)
  1. CLOZARIL [Suspect]
     Indication: SCHIZOPHRENIA
     Dosage: 200 MG DAILY
     Route: 048
     Dates: start: 20071210
  2. METFORMIN HYDROCHLORIDE [Concomitant]
     Dosage: 850 MG, BID
  3. NU-SEALS ASPIRIN [Concomitant]
     Dosage: 75 MG DAILY
  4. DIAZEPAM [Concomitant]
     Dosage: 2 MG, BID
  5. SINEMET [Concomitant]
     Dosage: 62.5MG BD 125MG MIDI
  6. COVERSYL [Concomitant]
     Dosage: 10 MG, BID
  7. PROCYLIDINE [Concomitant]
     Dosage: 10 MG, BID

REACTIONS (1)
  - MYOCARDIAL INFARCTION [None]
